FAERS Safety Report 25605547 (Version 4)
Quarter: 2025Q3

REPORT INFORMATION
  Report Type: Spontaneous
  Country: US (occurrence: US)
  Receive Date: 20250725
  Receipt Date: 20250818
  Transmission Date: 20251020
  Serious: No
  Sender: SANOFI AVENTIS
  Company Number: US-SA-2025SA205676

PATIENT
  Age: 70 Year
  Sex: Male
  Weight: 70.45 kg

DRUGS (8)
  1. DUPIXENT [Suspect]
     Active Substance: DUPILUMAB
     Indication: Illness
     Dosage: 300 MG, QOW
     Route: 058
  2. VORICONAZOLE [Concomitant]
     Active Substance: VORICONAZOLE
  3. LEVOTHYROXINE SODIUM [Concomitant]
     Active Substance: LEVOTHYROXINE SODIUM
  4. ELIQUIS [Concomitant]
     Active Substance: APIXABAN
  5. CALCIUM CARBONATE\CHOLECALCIFEROL [Concomitant]
     Active Substance: CALCIUM CARBONATE\CHOLECALCIFEROL
  6. ACETAMINOPHEN\HYDROCODONE [Concomitant]
     Active Substance: ACETAMINOPHEN\HYDROCODONE
  7. MOUNJARO [Concomitant]
     Active Substance: TIRZEPATIDE
  8. TYMLOS [Concomitant]
     Active Substance: ABALOPARATIDE

REACTIONS (2)
  - Injection site mass [Unknown]
  - Injection site pain [Unknown]
